FAERS Safety Report 8376477-6 (Version None)
Quarter: 2012Q2

REPORT INFORMATION
  Report Type: 
  Country: None (occurrence: None)
  Receive Date: 20120522
  Receipt Date: 20120515
  Transmission Date: 20120825
  Serious: Yes (Hospitalization)
  Sender: FDA-Public Use
  Company Number: IT-PFIZER INC-2012118733

PATIENT
  Sex: Male

DRUGS (3)
  1. CYTARABINE [Suspect]
     Route: 065
  2. CARBOPLATIN [Suspect]
     Route: 065
  3. ETOPOSIDE [Suspect]
     Route: 065

REACTIONS (3)
  - HYPOTENSION [None]
  - CHILLS [None]
  - FEBRILE NEUTROPENIA [None]
